FAERS Safety Report 17806870 (Version 6)
Quarter: 2022Q3

REPORT INFORMATION
  Report Type: Spontaneous
  Country: US (occurrence: US)
  Receive Date: 20200520
  Receipt Date: 20220729
  Transmission Date: 20221027
  Serious: Yes (Other)
  Sender: FDA-Public Use
  Company Number: US-PFIZER INC-2020200377

PATIENT
  Age: 65 Year
  Sex: Female

DRUGS (6)
  1. IBRANCE [Suspect]
     Active Substance: PALBOCICLIB
     Dosage: UNK,125 MG
     Dates: start: 202001
  2. IBRANCE [Suspect]
     Active Substance: PALBOCICLIB
     Dosage: UNK,125 MG
     Dates: start: 20200225, end: 2020
  3. IBRANCE [Suspect]
     Active Substance: PALBOCICLIB
     Dosage: UNK,125 MG
     Dates: start: 20200701, end: 2020
  4. IBRANCE [Suspect]
     Active Substance: PALBOCICLIB
     Dosage: UNK,125 MG
     Dates: start: 20210525, end: 20210605
  5. IBRANCE [Suspect]
     Active Substance: PALBOCICLIB
     Dosage: UNK,125 MG
     Dates: start: 20191005
  6. IBRANCE [Suspect]
     Active Substance: PALBOCICLIB
     Dosage: UNK,125 MG
     Dates: start: 20200414

REACTIONS (9)
  - Neutropenia [Unknown]
  - White blood cell count decreased [Unknown]
  - Neutrophil count decreased [Recovered/Resolved]
  - Urinary tract infection [Unknown]
  - Oral pain [Unknown]
  - Fatigue [Unknown]
  - Product outer packaging issue [Unknown]
  - Stomatitis [Unknown]
  - Nausea [Unknown]

NARRATIVE: CASE EVENT DATE: 20200101
